FAERS Safety Report 8925293 (Version 4)
Quarter: 2013Q2

REPORT INFORMATION
  Report Type: Report from Study
  Country: FR (occurrence: FR)
  Receive Date: 20121126
  Receipt Date: 20130520
  Transmission Date: 20140414
  Serious: Yes (Hospitalization)
  Sender: FDA-Public Use
  Company Number: FR-ROCHE-1042095

PATIENT
  Sex: Male
  Weight: 80 kg

DRUGS (8)
  1. RITUXIMAB [Suspect]
     Indication: MALIGNANT LYMPHOID NEOPLASM
     Dosage: DATE OF LAST DOSE PRIOR TO SAE: 03 OCT 2012
     Route: 042
     Dates: start: 20120210, end: 20121003
  2. CYTARABINE [Suspect]
     Indication: MALIGNANT LYMPHOID NEOPLASM
     Route: 042
     Dates: start: 20120813, end: 20121014
  3. CYTARABINE [Suspect]
     Dosage: LAST DOSE PRIOT TO SAE 04 OCT 2012
     Route: 042
     Dates: end: 20121014
  4. METHOTREXATE [Suspect]
     Indication: MALIGNANT LYMPHOID NEOPLASM
     Dosage: DATE OF LAST DOSE PRIOR TO SAE: 10/FEB/2012
     Route: 042
     Dates: start: 20120210, end: 20120418
  5. ETOPOSIDE [Suspect]
     Indication: MALIGNANT LYMPHOID NEOPLASM
     Dosage: DATE OF LAST DOSE PRIOR TO SAE: 11/FEB/2012
     Route: 042
     Dates: start: 20120211, end: 20120329
  6. CARMUSTINE [Suspect]
     Indication: MALIGNANT LYMPHOID NEOPLASM
     Route: 042
     Dates: start: 20120213, end: 20120330
  7. PREDNISONE [Suspect]
     Indication: MALIGNANT LYMPHOID NEOPLASM
     Dosage: LAST DOSE ADMINISTRATION WAS 60MG
     Route: 048
     Dates: start: 20120113
  8. PREDNISONE [Suspect]
     Dosage: CUMULATIVE DOSE: 238 MG
     Route: 065
     Dates: start: 20120328, end: 20120401

REACTIONS (3)
  - Febrile bone marrow aplasia [Recovered/Resolved]
  - Febrile bone marrow aplasia [Recovered/Resolved]
  - Bone marrow failure [Recovered/Resolved]
